FAERS Safety Report 9732151 (Version 2)
Quarter: 2013Q4

REPORT INFORMATION
  Report Type: Spontaneous
  Country: JP (occurrence: JP)
  Receive Date: 20131205
  Receipt Date: 20131205
  Transmission Date: 20140711
  Serious: Yes (Other)
  Sender: FDA-Public Use
  Company Number: JP-ASTELLAS-2013JP012847

PATIENT
  Sex: Female

DRUGS (5)
  1. PROGRAF [Suspect]
     Indication: PROPHYLAXIS AGAINST GRAFT VERSUS HOST DISEASE
     Dosage: UNK
     Route: 041
     Dates: start: 20131029
  2. FUNGUARD [Concomitant]
     Indication: INFECTION PROPHYLAXIS
     Dosage: 150 MG, UNKNOWN/D
     Route: 041
  3. ACICLOVIR [Concomitant]
     Dosage: UNK
     Route: 065
  4. URSO                               /00465701/ [Concomitant]
     Dosage: UNK
     Route: 048
  5. LEVOFLOXACIN HYDRATE [Concomitant]
     Dosage: UNK
     Route: 065
     Dates: end: 20131124

REACTIONS (4)
  - Drug ineffective [Unknown]
  - Graft versus host disease in skin [Unknown]
  - Feeling hot [Recovered/Resolved]
  - Pigmentation disorder [Recovered/Resolved]
